FAERS Safety Report 18227954 (Version 1)
Quarter: 2020Q3

REPORT INFORMATION
  Report Type: Spontaneous
  Country: FR (occurrence: FR)
  Receive Date: 20200903
  Receipt Date: 20200903
  Transmission Date: 20201103
  Serious: Yes (Hospitalization)
  Sender: FDA-Public Use
  Company Number: FR-009507513-2008FRA014098

PATIENT
  Age: 89 Year
  Sex: Female
  Weight: 85 kg

DRUGS (12)
  1. DIFFU?K [Suspect]
     Active Substance: POTASSIUM CHLORIDE
     Indication: HYPOKALAEMIA
     Route: 048
  2. ZELITREX [Suspect]
     Active Substance: VALACYCLOVIR HYDROCHLORIDE
     Indication: HERPES ZOSTER
     Dosage: UNK
     Route: 048
     Dates: start: 20200713
  3. LERCANIDIPINE [Suspect]
     Active Substance: LERCANIDIPINE
     Indication: HYPERTENSION
     Route: 048
  4. FUROSEMIDE. [Suspect]
     Active Substance: FUROSEMIDE
     Indication: HYPERTENSION
     Dosage: 40 MILLIGRAM, QD
     Route: 048
  5. RAMIPRIL. [Suspect]
     Active Substance: RAMIPRIL
     Indication: HYPERTENSION
     Dosage: 2.5 MILLIGRAM, QD
     Route: 048
  6. AMIODARONE [Suspect]
     Active Substance: AMIODARONE
     Indication: CARDIAC DISORDER
     Route: 048
  7. STAGID [Suspect]
     Active Substance: METFORMIN PAMOATE
     Indication: TYPE 2 DIABETES MELLITUS
     Route: 048
  8. AERIUS (DESLORATADINE) [Suspect]
     Active Substance: DESLORATADINE
     Indication: ANTIALLERGIC THERAPY
     Route: 048
     Dates: start: 20200713
  9. ESIDREX [Suspect]
     Active Substance: HYDROCHLOROTHIAZIDE
     Indication: HYPERTENSION
     Dosage: 0.5 DOSAGE FORM, QD
     Route: 048
  10. PYOSTACINE [Suspect]
     Active Substance: PRISTINAMYCIN
     Indication: HERPES ZOSTER
     Route: 048
     Dates: start: 20200713
  11. PREVISCAN (FLUINDIONE) [Suspect]
     Active Substance: FLUINDIONE
     Indication: ATRIAL FIBRILLATION
     Dosage: 0.25 DOSAGE FORM, QD
     Route: 048
     Dates: end: 20200713
  12. LEVOTHYROX [Suspect]
     Active Substance: LEVOTHYROXINE
     Indication: THYROID DISORDER
     Route: 048

REACTIONS (3)
  - Hyperkalaemia [Recovered/Resolved]
  - Acute kidney injury [Recovered/Resolved]
  - Hyponatraemia [Recovered/Resolved]

NARRATIVE: CASE EVENT DATE: 20200716
